FAERS Safety Report 4801427-6 (Version None)
Quarter: 2005Q4

REPORT INFORMATION
  Report Type: 
  Country: None (occurrence: None)
  Receive Date: 20051018
  Receipt Date: 20051007
  Transmission Date: 20060501
  Serious: Yes (Hospitalization)
  Sender: FDA-Public Use
  Company Number: JP-BOEHRINGER INGELHEIM PHARMACEUTICALS, INC.-2005-DE-04142GD

PATIENT
  Age: 85 Year
  Sex: Female
  Weight: 38.9 kg

DRUGS (9)
  1. SIFROL [Suspect]
     Indication: PARKINSON'S DISEASE
     Dates: start: 20040618
  2. SIFROL [Suspect]
  3. MANTIDAN [Concomitant]
     Indication: PARKINSON'S DISEASE
  4. DROXIDOPA [Concomitant]
     Indication: PARKINSON'S DISEASE
  5. LEVODOPA [Concomitant]
     Indication: PARKINSON'S DISEASE
  6. CARBIDOPA [Concomitant]
     Indication: PARKINSON'S DISEASE
  7. PRAVASTATIN [Concomitant]
  8. INDAPAMIDE [Concomitant]
  9. PROPIVERINE [Concomitant]

REACTIONS (3)
  - DEPRESSED LEVEL OF CONSCIOUSNESS [None]
  - HYPONATRAEMIA [None]
  - INAPPROPRIATE ANTIDIURETIC HORMONE SECRETION [None]
